FAERS Safety Report 6064692-6 (Version None)
Quarter: 2009Q1

REPORT INFORMATION
  Report Type: 
  Country: None (occurrence: None)
  Receive Date: 20090204
  Receipt Date: 20080602
  Transmission Date: 20090719
  Serious: No
  Sender: FDA-Public Use
  Company Number: A0732085A

PATIENT
  Age: 52 Year
  Sex: Female

DRUGS (9)
  1. ARIXTRA [Suspect]
     Indication: DRUG USE FOR UNKNOWN INDICATION
     Dosage: 7.5MG UNKNOWN
     Route: 058
     Dates: start: 20080601
  2. WARFARIN SODIUM [Concomitant]
  3. PROPRANOLOL [Concomitant]
  4. HYDROCHLOROTHIAZIDE [Concomitant]
  5. NEXIUM [Concomitant]
  6. FLUCONAZOLE [Concomitant]
  7. POTASSIUM CHLORIDE [Concomitant]
  8. METHYLPREDNISOLONE [Concomitant]
  9. PERCOCET [Concomitant]

REACTIONS (1)
  - RASH GENERALISED [None]
